FAERS Safety Report 5400782-6 (Version None)
Quarter: 2007Q3

REPORT INFORMATION
  Report Type: 
  Country: None (occurrence: None)
  Receive Date: 20070730
  Receipt Date: 20070723
  Transmission Date: 20080115
  Serious: Yes (Other)
  Sender: FDA-Public Use
  Company Number: GB-PFIZER INC-2007061211

PATIENT
  Age: 21 Year
  Sex: Male
  Weight: 60 kg

DRUGS (1)
  1. SERTRALINE [Suspect]
     Indication: OBSESSIVE-COMPULSIVE DISORDER
     Dosage: DAILY DOSE:200MG-TEXT:200MG
     Route: 048
     Dates: start: 20070518, end: 20070614

REACTIONS (1)
  - GRAND MAL CONVULSION [None]
